FAERS Safety Report 8163436-1 (Version None)
Quarter: 2012Q1

REPORT INFORMATION
  Report Type: 
  Country: None (occurrence: None)
  Receive Date: 20120224
  Receipt Date: 20120217
  Transmission Date: 20120608
  Serious: Yes (Hospitalization, Other)
  Sender: FDA-Public Use
  Company Number: US-ASTRAZENECA-2012SE11211

PATIENT
  Age: 24226 Day
  Sex: Female

DRUGS (7)
  1. LORAZEPAM [Concomitant]
     Dates: start: 20101110
  2. BACLOFEN [Concomitant]
     Dates: start: 20101110
  3. GLYBURIDE [Concomitant]
     Dates: start: 20101110
  4. OXYCONTIN [Concomitant]
     Dates: start: 20101110
  5. PRILOSEC [Suspect]
     Dosage: TAKE IT ONE HALF HOUR BEFORE DINNER
     Route: 065
     Dates: start: 20101110
  6. LISINOPRIL [Concomitant]
     Dates: start: 20101110
  7. OXYCODONE HCL AND ACETAMINOPHEN [Concomitant]
     Dates: start: 20101110

REACTIONS (11)
  - ANAEMIA [None]
  - HYPERTENSIVE NEPHROPATHY [None]
  - DYSTHYMIC DISORDER [None]
  - CELLULITIS [None]
  - VASCULITIS [None]
  - SKIN ULCER [None]
  - RENAL FAILURE ACUTE [None]
  - DYSPHAGIA [None]
  - PERIPHERAL VASCULAR DISORDER [None]
  - SLEEP APNOEA SYNDROME [None]
  - MOBILITY DECREASED [None]
